FAERS Safety Report 10130901 (Version 1)
Quarter: 2014Q2

REPORT INFORMATION
  Report Type: Spontaneous
  Country: US (occurrence: None)
  Receive Date: 20140425
  Receipt Date: 20140425
  Transmission Date: 20141212
  Serious: No
  Sender: FDA-Public Use
  Company Number: None

PATIENT
  Age: 56 Year
  Sex: Female

DRUGS (1)
  1. VIVELLE DOT [Suspect]
     Indication: MENOPAUSE
     Dosage: APPLY ONE PATCH TWICE A WEEK.

REACTIONS (3)
  - Product packaging quantity issue [None]
  - Drug level decreased [None]
  - Menopausal symptoms [None]
